FAERS Safety Report 16204766 (Version 3)
Quarter: 2021Q3

REPORT INFORMATION
  Report Type: Spontaneous
  Country: US (occurrence: US)
  Receive Date: 20190416
  Receipt Date: 20210707
  Transmission Date: 20211014
  Serious: Yes (Death, Other)
  Sender: FDA-Public Use
  Company Number: US-ASTRAZENECA-2019SE53084

PATIENT
  Age: 18276 Day
  Sex: Female

DRUGS (58)
  1. NEXIUM [Suspect]
     Active Substance: ESOMEPRAZOLE MAGNESIUM
     Indication: GASTROOESOPHAGEAL REFLUX DISEASE
     Dosage: GENERIC UNKNOWN
     Route: 065
     Dates: start: 20161010
  2. METHOCARBAMOL. [Concomitant]
     Active Substance: METHOCARBAMOL
  3. LEVOTHYROXINE. [Concomitant]
     Active Substance: LEVOTHYROXINE
  4. LACTULOSE. [Concomitant]
     Active Substance: LACTULOSE
  5. METOLAZONE. [Concomitant]
     Active Substance: METOLAZONE
  6. LISINOPRIL. [Concomitant]
     Active Substance: LISINOPRIL
  7. METOPROLOL SUCCINATE. [Concomitant]
     Active Substance: METOPROLOL SUCCINATE
     Dates: start: 20160727
  8. LEVAQUIN [Concomitant]
     Active Substance: LEVOFLOXACIN
  9. PROTONIX [Suspect]
     Active Substance: PANTOPRAZOLE SODIUM
     Indication: GASTROOESOPHAGEAL REFLUX DISEASE
     Dosage: 40.0MG UNKNOWN
     Route: 065
     Dates: start: 20020815
  10. LOSARTAN. [Concomitant]
     Active Substance: LOSARTAN
  11. DOXYCYCLINE. [Concomitant]
     Active Substance: DOXYCYCLINE
  12. LOPERAMIDE [Concomitant]
     Active Substance: LOPERAMIDE
  13. AMLODIPINE BESYLATE. [Concomitant]
     Active Substance: AMLODIPINE BESYLATE
  14. DOXAZOSIN [Concomitant]
     Active Substance: DOXAZOSIN MESYLATE
  15. CEFDINIR. [Concomitant]
     Active Substance: CEFDINIR
  16. BENZONATATE. [Concomitant]
     Active Substance: BENZONATATE
  17. MAXZIDE [Concomitant]
     Active Substance: HYDROCHLOROTHIAZIDE\TRIAMTERENE
     Indication: SWELLING
     Dates: start: 20180921
  18. AZELASTINE. [Concomitant]
     Active Substance: AZELASTINE HYDROCHLORIDE
  19. NEXIUM [Suspect]
     Active Substance: ESOMEPRAZOLE MAGNESIUM
     Indication: GASTROOESOPHAGEAL REFLUX DISEASE
     Route: 048
     Dates: start: 2002, end: 2018
  20. NEXIUM [Suspect]
     Active Substance: ESOMEPRAZOLE MAGNESIUM
     Indication: GASTROOESOPHAGEAL REFLUX DISEASE
     Dosage: GENERIC40.0MG UNKNOWN
     Route: 065
     Dates: start: 2016, end: 2017
  21. NEXIUM [Suspect]
     Active Substance: ESOMEPRAZOLE MAGNESIUM
     Indication: GASTROOESOPHAGEAL REFLUX DISEASE
     Dosage: 40.0MG UNKNOWN
     Route: 048
     Dates: start: 20160412
  22. TRAMADOL. [Concomitant]
     Active Substance: TRAMADOL
  23. LIDOCAINE. [Concomitant]
     Active Substance: LIDOCAINE
  24. LORATADINE. [Concomitant]
     Active Substance: LORATADINE
  25. HUMALOG [Concomitant]
     Active Substance: INSULIN LISPRO
  26. CLONIDINE. [Concomitant]
     Active Substance: CLONIDINE
  27. SENSIPAR [Concomitant]
     Active Substance: CINACALCET HYDROCHLORIDE
     Indication: BLOOD CALCIUM ABNORMAL
     Dates: start: 2014, end: 2015
  28. LASIX [Concomitant]
     Active Substance: FUROSEMIDE
  29. PROTONIX [Suspect]
     Active Substance: PANTOPRAZOLE SODIUM
     Indication: GASTROOESOPHAGEAL REFLUX DISEASE
     Route: 065
     Dates: start: 2002, end: 2018
  30. PROTONIX [Suspect]
     Active Substance: PANTOPRAZOLE SODIUM
     Indication: GASTROOESOPHAGEAL REFLUX DISEASE
     Dosage: 40.0MG UNKNOWN
     Route: 065
     Dates: start: 2002
  31. PREDNISONE. [Concomitant]
     Active Substance: PREDNISONE
     Indication: STEROID THERAPY
     Dates: start: 2011, end: 2018
  32. ONDANSETRON [Concomitant]
     Active Substance: ONDANSETRON
     Indication: NAUSEA
     Dates: start: 2016, end: 2018
  33. METOPROLOL TARTRATE. [Concomitant]
     Active Substance: METOPROLOL TARTRATE
  34. FLUTICASONE PROPIONATE. [Concomitant]
     Active Substance: FLUTICASONE PROPIONATE
  35. PROAIR HFA [Concomitant]
     Active Substance: ALBUTEROL SULFATE
  36. BASAGLAR [Concomitant]
     Active Substance: INSULIN GLARGINE
     Indication: DIABETES MELLITUS
     Dates: start: 2018
  37. SYNTHROID [Concomitant]
     Active Substance: LEVOTHYROXINE SODIUM
  38. VERAPAMIL [Concomitant]
     Active Substance: VERAPAMIL HYDROCHLORIDE
  39. NASONEX [Concomitant]
     Active Substance: MOMETASONE FUROATE
     Dates: start: 20180921
  40. MAXZIDE [Concomitant]
     Active Substance: HYDROCHLOROTHIAZIDE\TRIAMTERENE
     Indication: HYPERTENSION
     Dates: start: 20180921
  41. ZEMPLAR [Concomitant]
     Active Substance: PARICALCITOL
  42. PROCRIT [Concomitant]
     Active Substance: ERYTHROPOIETIN
  43. RESTORIL [Concomitant]
     Active Substance: TEMAZEPAM
     Dates: start: 20100412
  44. ZOCOR [Concomitant]
     Active Substance: SIMVASTATIN
  45. IMITREX [Concomitant]
     Active Substance: SUMATRIPTAN SUCCINATE
  46. CLOBETASOL [Concomitant]
     Active Substance: CLOBETASOL
  47. RENVELA [Concomitant]
     Active Substance: SEVELAMER CARBONATE
  48. LYRICA [Concomitant]
     Active Substance: PREGABALIN
  49. KLOR?CON [Concomitant]
     Active Substance: POTASSIUM CHLORIDE
  50. ULORIC [Concomitant]
     Active Substance: FEBUXOSTAT
  51. DILTIAZEM. [Concomitant]
     Active Substance: DILTIAZEM
     Dates: start: 20160727
  52. NEXIUM [Suspect]
     Active Substance: ESOMEPRAZOLE MAGNESIUM
     Indication: GASTROOESOPHAGEAL REFLUX DISEASE
     Dosage: 40.0MG UNKNOWN
     Route: 048
     Dates: start: 2004, end: 2015
  53. OMEPRAZOLE. [Suspect]
     Active Substance: OMEPRAZOLE
     Indication: GASTROOESOPHAGEAL REFLUX DISEASE
     Dosage: 40.0MG UNKNOWN
     Route: 065
     Dates: start: 2018
  54. PRAVASTATIN SODIUM. [Concomitant]
     Active Substance: PRAVASTATIN SODIUM
     Indication: BLOOD CHOLESTEROL INCREASED
     Dates: start: 2011, end: 2018
  55. MUPIROCIN. [Concomitant]
     Active Substance: MUPIROCIN
  56. METHYLPREDNISOLONE. [Concomitant]
     Active Substance: METHYLPREDNISOLONE
  57. NYSTATIN. [Concomitant]
     Active Substance: NYSTATIN
  58. BYSTOLIC [Concomitant]
     Active Substance: NEBIVOLOL HYDROCHLORIDE

REACTIONS (5)
  - Nephrogenic anaemia [Unknown]
  - Chronic kidney disease [Unknown]
  - End stage renal disease [Unknown]
  - Death [Fatal]
  - Renal failure [Unknown]

NARRATIVE: CASE EVENT DATE: 20020815
